FAERS Safety Report 17963625 (Version 3)
Quarter: 2022Q1

REPORT INFORMATION
  Report Type: Spontaneous
  Country: US (occurrence: US)
  Receive Date: 20200630
  Receipt Date: 20220301
  Transmission Date: 20220423
  Serious: Yes (Other)
  Sender: FDA-Public Use
  Company Number: US-GLAXOSMITHKLINE-US2020GSK113755

PATIENT
  Age: 50 Year
  Sex: Male
  Weight: 83 kg

DRUGS (6)
  1. RANITIDINE HYDROCHLORIDE [Suspect]
     Active Substance: RANITIDINE HYDROCHLORIDE
     Indication: Product used for unknown indication
     Dosage: UNK
     Route: 065
     Dates: start: 2003, end: 2019
  2. RANITIDINE HYDROCHLORIDE [Suspect]
     Active Substance: RANITIDINE HYDROCHLORIDE
     Indication: Dyspepsia
     Dosage: UNK
     Route: 065
     Dates: start: 201301, end: 201901
  3. RANITIDINE HYDROCHLORIDE [Suspect]
     Active Substance: RANITIDINE HYDROCHLORIDE
     Indication: Gastrooesophageal reflux disease
     Dosage: 300 MG, BID
     Route: 065
     Dates: start: 200301, end: 201901
  4. RANITIDINE HYDROCHLORIDE [Suspect]
     Active Substance: RANITIDINE HYDROCHLORIDE
     Dosage: 300 MG, BID
     Route: 048
     Dates: start: 20080222, end: 20180611
  5. RANITIDINE HYDROCHLORIDE [Suspect]
     Active Substance: RANITIDINE HYDROCHLORIDE
     Indication: Dyspepsia
     Dosage: UNK
     Route: 065
     Dates: start: 201301, end: 201901
  6. RANITIDINE HYDROCHLORIDE [Suspect]
     Active Substance: RANITIDINE HYDROCHLORIDE
     Indication: Gastrooesophageal reflux disease
     Dosage: 300 MG, QD
     Route: 065
     Dates: start: 200301, end: 201901

REACTIONS (13)
  - Testis cancer [Unknown]
  - Seminoma [Unknown]
  - Erectile dysfunction [Unknown]
  - Leukaemia [Unknown]
  - Pancytopenia [Unknown]
  - Acute myeloid leukaemia [Unknown]
  - Chronic myelomonocytic leukaemia [Unknown]
  - Testicular pain [Unknown]
  - Testicular swelling [Unknown]
  - Testicular mass [Unknown]
  - Testicular neoplasm [Unknown]
  - Testicular microlithiasis [Unknown]
  - Heterogeneous testis [Unknown]

NARRATIVE: CASE EVENT DATE: 20140101
